FAERS Safety Report 5075934-8 (Version None)
Quarter: 2006Q3

REPORT INFORMATION
  Report Type: 
  Country: None (occurrence: None)
  Receive Date: 20060808
  Receipt Date: 20060808
  Transmission Date: 20061208
  Serious: Yes (Other)
  Sender: FDA-Public Use
  Company Number: None

PATIENT
  Sex: Male
  Weight: 102.0593 kg

DRUGS (2)
  1. CEFAZOLIN [Suspect]
     Indication: POSTOPERATIVE CARE
     Dosage: IV EVERY 8 HOURS
     Route: 042
     Dates: start: 20060216, end: 20060216
  2. ANCEF [Suspect]
     Indication: POSTOPERATIVE CARE
     Dosage: INJECTION 1 VIAL PER DOSE
     Dates: start: 20060217, end: 20060217

REACTIONS (3)
  - POOR QUALITY DRUG ADMINISTERED [None]
  - POSTOPERATIVE INFECTION [None]
  - WOUND DRAINAGE [None]
